FAERS Safety Report 7523326-1 (Version None)
Quarter: 2011Q2

REPORT INFORMATION
  Report Type: 
  Country: None (occurrence: None)
  Receive Date: 20110603
  Receipt Date: 20110303
  Transmission Date: 20111010
  Serious: Yes (Hospitalization)
  Sender: FDA-Public Use
  Company Number: A0916403A

PATIENT
  Age: 55 Year
  Sex: Female

DRUGS (2)
  1. TYKERB [Suspect]
     Indication: BREAST CANCER
     Dosage: 1250MGD PER DAY
     Route: 065
     Dates: start: 20081101, end: 20091101
  2. XELODA [Suspect]
     Dosage: 2000MG TWICE PER DAY
     Route: 065
     Dates: start: 20081101, end: 20091101

REACTIONS (1)
  - DIARRHOEA [None]
